FAERS Safety Report 15733271 (Version 1)
Quarter: 2018Q4

REPORT INFORMATION
  Report Type: Spontaneous
  Country: DE (occurrence: DE)
  Receive Date: 20181218
  Receipt Date: 20181218
  Transmission Date: 20190205
  Serious: Yes (Death, Other)
  Sender: FDA-Public Use
  Company Number: DE-DEXPHARM-20180967

PATIENT
  Age: 76 Year

DRUGS (18)
  1. AQUAPHOR [Suspect]
     Active Substance: PETROLATUM
     Indication: OEDEMA
     Route: 048
     Dates: start: 19970709
  2. ACC LONG [Suspect]
     Active Substance: ACETYLCYSTEINE
     Indication: UNEVALUABLE EVENT
     Route: 048
     Dates: start: 19970702
  3. BENSERAZIDE HYDROCHLORIDE/LEVODOPA [Suspect]
     Active Substance: BENSERAZIDE HYDROCHLORIDE\LEVODOPA
     Indication: PARKINSON^S DISEASE
     Dosage: 4 DF, 1X/DAY
     Route: 048
     Dates: start: 19970702
  4. BRONCHOCORT [Suspect]
     Active Substance: BECLOMETHASONE DIPROPIONATE
     Indication: CHRONIC OBSTRUCTIVE PULMONARY DISEASE
     Dosage: 4 DF, 1X/DAY
     Route: 055
     Dates: start: 19970702
  5. MONO-EMBOLEX [Suspect]
     Active Substance: CERTOPARIN SODIUM
     Indication: THROMBOSIS PROPHYLAXIS
     Dosage: 4 DF, 1X/DAY
     Route: 058
     Dates: start: 19970702
  6. BERODUAL [Suspect]
     Active Substance: FENOTEROL HYDROBROMIDE\IPRATROPIUM BROMIDE
     Indication: CHRONIC OBSTRUCTIVE PULMONARY DISEASE
     Dosage: 4 DF, 1X/DAY
     Route: 055
     Dates: start: 19970702
  7. ASPIRIN. [Suspect]
     Active Substance: ASPIRIN
     Indication: THROMBOSIS PROPHYLAXIS
     Dosage: 4 DF, 1X/DAY
     Route: 048
  8. ISOKET [Concomitant]
     Active Substance: ISOSORBIDE DINITRATE
     Indication: CORONARY ARTERY DISEASE
     Dosage: 4 DF, 1X/DAY
     Route: 048
     Dates: end: 19970701
  9. DECORTIN-H [Suspect]
     Active Substance: PREDNISOLONE
     Indication: CHRONIC OBSTRUCTIVE PULMONARY DISEASE
     Dosage: 4 DF, 1X/DAY
     Route: 048
     Dates: start: 19970702
  10. ANTRA [Suspect]
     Active Substance: OMEPRAZOLE
     Indication: ULCER
     Dosage: 4 DF, 1X/DAY
     Route: 048
     Dates: start: 19970704
  11. UNACID PD [Suspect]
     Active Substance: SULTAMICILLIN TOSYLATE
     Indication: PNEUMONIA
     Dosage: 4 DF, 1X/DAY
     Route: 048
     Dates: start: 19970702
  12. AMLODIPINE [Concomitant]
     Active Substance: AMLODIPINE BESYLATE
     Indication: HYPERTENSION
     Dosage: 4 DF, 1X/DAY
     Route: 048
  13. AFONILUM [Suspect]
     Active Substance: THEOPHYLLINE
     Indication: CHRONIC OBSTRUCTIVE PULMONARY DISEASE
     Dosage: 4 DF, 1X/DAY
     Route: 048
     Dates: start: 19970707
  14. DIGIMERCK [Concomitant]
     Active Substance: DIGITOXIN
     Indication: CARDIAC FAILURE
     Route: 048
  15. MONO MACK [Suspect]
     Active Substance: ISOSORBIDE MONONITRATE
     Indication: CORONARY ARTERY DISEASE
     Dosage: 4 DF, 1X/DAY
     Route: 048
     Dates: start: 19970702
  16. LASIX [Suspect]
     Active Substance: FUROSEMIDE
     Indication: OEDEMA
     Route: 048
     Dates: start: 19970702
  17. AMARYL [Concomitant]
     Active Substance: GLIMEPIRIDE
     Indication: DIABETES MELLITUS
     Dosage: 4 DF, 1X/DAY
     Route: 048
  18. ALFUZOSIN HYDROCHLORIDE. [Concomitant]
     Active Substance: ALFUZOSIN HYDROCHLORIDE
     Indication: BENIGN PROSTATIC HYPERPLASIA
     Route: 048
     Dates: end: 19970701

REACTIONS (2)
  - Multiple organ dysfunction syndrome [Fatal]
  - Toxic epidermal necrolysis [Fatal]

NARRATIVE: CASE EVENT DATE: 19970714
